FAERS Safety Report 8804777 (Version 1)
Quarter: 2012Q4

REPORT INFORMATION
  Report Type: 
  Country: US (occurrence: US)
  Receive Date: 20120924
  Receipt Date: 20120924
  Transmission Date: 20130627
  Serious: Yes (Hospitalization, Other)
  Sender: FDA-Public Use
  Company Number: US-009507513-1011USA02600

PATIENT

DRUGS (2)
  1. FOSAMAX [Suspect]
     Indication: OSTEOPENIA
     Dosage: 70 mg, QW
     Route: 048
     Dates: start: 20010921, end: 200504
  2. FOSAMAX [Suspect]
     Indication: OSTEOPENIA
     Route: 048
     Dates: start: 200508, end: 200508

REACTIONS (125)
  - Cardiac disorder [Unknown]
  - Skin cancer [Unknown]
  - Osteonecrosis of jaw [Unknown]
  - Abdominal pain upper [Unknown]
  - Type 2 diabetes mellitus [Unknown]
  - Fungal infection [Unknown]
  - Oesophageal spasm [Unknown]
  - Gallbladder disorder [Unknown]
  - Arrhythmia [Unknown]
  - Exostosis [Unknown]
  - Tooth fracture [Unknown]
  - Head injury [Unknown]
  - Head injury [Unknown]
  - Bone disorder [Unknown]
  - Infected cyst [Unknown]
  - Dermal cyst [Unknown]
  - Benign neoplasm of skin [Unknown]
  - Weight decreased [Unknown]
  - Post concussion syndrome [Unknown]
  - Skin papilloma [Unknown]
  - Cellulitis [Unknown]
  - Ocular hypertension [Unknown]
  - Cataract [Unknown]
  - Actinic keratosis [Not Recovered/Not Resolved]
  - Borderline glaucoma [Unknown]
  - Cough [Unknown]
  - Ear pain [Unknown]
  - Malaise [Unknown]
  - Fatigue [Unknown]
  - Respiratory failure [Unknown]
  - Swelling [Unknown]
  - Mitral valve disease [Unknown]
  - Wound [Unknown]
  - Insomnia [Unknown]
  - Sleep apnoea syndrome [Unknown]
  - Skin discolouration [Unknown]
  - Chondropathy [Unknown]
  - Acute sinusitis [Unknown]
  - Epicondylitis [Unknown]
  - Tendonitis [Unknown]
  - Epistaxis [Unknown]
  - Astigmatism [Unknown]
  - Presbyopia [Unknown]
  - Arthropathy [Unknown]
  - Birth mark [Unknown]
  - Eustachian tube dysfunction [Unknown]
  - Hirsutism [Unknown]
  - Limb injury [Unknown]
  - Transaminases increased [Unknown]
  - Blood lactate dehydrogenase increased [Unknown]
  - Abdominal pain [Unknown]
  - Contusion [Unknown]
  - Rosacea [Unknown]
  - Obesity [Unknown]
  - Benign neoplasm [Unknown]
  - Metabolic syndrome [Unknown]
  - Gastrointestinal inflammation [Unknown]
  - Supraventricular tachycardia [Unknown]
  - Chest pain [Not Recovered/Not Resolved]
  - Bursa disorder [Unknown]
  - Cardiac disorder [Unknown]
  - Hypercholesterolaemia [Unknown]
  - Synovial cyst [Unknown]
  - Vulvovaginitis [Unknown]
  - Palpitations [Unknown]
  - Contusion [Unknown]
  - Transient ischaemic attack [Unknown]
  - Onychomycosis [Unknown]
  - Rectal haemorrhage [Unknown]
  - Weight decreased [Unknown]
  - Migraine [Unknown]
  - Anxiety [Unknown]
  - Atrophic vulvovaginitis [Not Recovered/Not Resolved]
  - Venous thrombosis [Unknown]
  - Fibromatosis [Unknown]
  - Arteriosclerosis coronary artery [Unknown]
  - Bronchitis [Unknown]
  - Upper respiratory tract infection [Unknown]
  - Conjunctivitis allergic [Unknown]
  - Breast disorder [Unknown]
  - Nasal septum deviation [Unknown]
  - Otitis externa [Unknown]
  - Blepharitis [Unknown]
  - Vitamin D deficiency [Unknown]
  - Hair disorder [Unknown]
  - Urinary tract infection [Unknown]
  - Stress urinary incontinence [Unknown]
  - Pollakiuria [Unknown]
  - Cerumen impaction [Unknown]
  - Myositis [Unknown]
  - Sjogren^s syndrome [Unknown]
  - Radiculitis lumbosacral [Unknown]
  - Tooth disorder [Unknown]
  - Temporomandibular joint syndrome [Unknown]
  - Loose tooth [Unknown]
  - Sensitivity of teeth [Unknown]
  - Fistula [Unknown]
  - Facial pain [Unknown]
  - Tinnitus [Not Recovered/Not Resolved]
  - Cyst [Unknown]
  - Uterine disorder [Unknown]
  - Arthritis [Unknown]
  - Hormone level abnormal [Unknown]
  - Tooth disorder [Unknown]
  - Tooth abscess [Unknown]
  - Migraine [Unknown]
  - Sinus disorder [Unknown]
  - Tooth abscess [Unknown]
  - Tooth disorder [Unknown]
  - Tooth disorder [Unknown]
  - Eye pain [Unknown]
  - Neuralgia [Unknown]
  - Surgery [Unknown]
  - Pain in jaw [Unknown]
  - Dizziness [Unknown]
  - Nausea [Unknown]
  - Dysphagia [Unknown]
  - Oesophagitis [Unknown]
  - Myalgia [Unknown]
  - Neck pain [Unknown]
  - Dizziness [Unknown]
  - Arthralgia [Unknown]
  - Muscle spasms [Unknown]
  - Abdominal pain [Unknown]
  - Headache [Unknown]
